FAERS Safety Report 7389633-0 (Version None)
Quarter: 2011Q2

REPORT INFORMATION
  Report Type: 
  Country: None (occurrence: None)
  Receive Date: 20110401
  Receipt Date: 20110323
  Transmission Date: 20111010
  Serious: No
  Sender: FDA-Public Use
  Company Number: B0708682A

PATIENT
  Age: 4 Year

DRUGS (1)
  1. RELENZA [Suspect]
     Route: 055

REACTIONS (2)
  - NO ADVERSE EVENT [None]
  - INCORRECT ROUTE OF DRUG ADMINISTRATION [None]
